FAERS Safety Report 23400894 (Version 17)
Quarter: 2025Q4

REPORT INFORMATION
  Report Type: Spontaneous
  Country: GB (occurrence: GB)
  Receive Date: 20240115
  Receipt Date: 20251111
  Transmission Date: 20260118
  Serious: Yes (Other)
  Sender: AMGEN
  Company Number: GB-PFIZER INC-PV202400003056

PATIENT
  Age: 74 Year
  Sex: Female

DRUGS (5)
  1. ENBREL [Suspect]
     Active Substance: ETANERCEPT
     Indication: Rheumatoid arthritis
     Dosage: 25 MG, 2X/WEEK (TUESDAY AND THURSDAY)
     Route: 058
  2. ENBREL [Suspect]
     Active Substance: ETANERCEPT
     Dosage: 2 DF, CYCLIC (EVERY 10 DAYS)
     Route: 058
  3. ENBREL [Suspect]
     Active Substance: ETANERCEPT
     Dosage: 50 MG, WEEKLY
     Route: 058
  4. ENBREL [Suspect]
     Active Substance: ETANERCEPT
     Dosage: 25 MG, WEEKLY
     Route: 065
  5. ENBREL [Suspect]
     Active Substance: ETANERCEPT
     Dosage: 50 MG, WEEKLY 25MG PEN INJECTIONS TAKEN TUESDAY AND THURSDAY
     Route: 065

REACTIONS (8)
  - Weight decreased [Not Recovered/Not Resolved]
  - Gait disturbance [Unknown]
  - Haematuria [Not Recovered/Not Resolved]
  - Renal pain [Not Recovered/Not Resolved]
  - Condition aggravated [Unknown]
  - Off label use [Unknown]
  - Intentional product misuse [Unknown]
  - Influenza [Unknown]
